FAERS Safety Report 9702723 (Version 3)
Quarter: 2014Q1

REPORT INFORMATION
  Report Type: Spontaneous
  Country: GB (occurrence: None)
  Receive Date: 20131120
  Receipt Date: 20140320
  Transmission Date: 20141002
  Serious: Yes (Life-Threatening, Disabling, Other)
  Sender: FDA-Public Use
  Company Number: AUR-APL-2013-09683

PATIENT
  Age: 31 Year
  Sex: Female
  Weight: 69.85 kg

DRUGS (3)
  1. MIRTAZAPINE [Suspect]
     Indication: DEPRESSION
     Dosage: 3 DOSAGE FORMS TOTAL
     Route: 048
     Dates: start: 20131020, end: 20131023
  2. SERTRALINE (SERTRALINE) [Concomitant]
     Indication: PRODUCT USED FOR UNKNOWN INDICATION
     Dates: start: 2008
  3. ZINC (ZINC) [Concomitant]

REACTIONS (43)
  - Psychotic disorder [None]
  - Apraxia [None]
  - Dyskinesia [None]
  - Suicidal behaviour [None]
  - Dysarthria [None]
  - Pain [None]
  - Dyspraxia [None]
  - Psychomotor retardation [None]
  - Petit mal epilepsy [None]
  - Hallucination [None]
  - Mania [None]
  - Muscle spasms [None]
  - Thirst [None]
  - Hypoaesthesia [None]
  - Self-injurious ideation [None]
  - Migraine [None]
  - Electric shock [None]
  - Pruritus [None]
  - Feeling hot [None]
  - Somnambulism [None]
  - Vision blurred [None]
  - Abnormal behaviour [None]
  - Dysphemia [None]
  - Tachyphrenia [None]
  - Abnormal behaviour [None]
  - Hallucination, visual [None]
  - Salivary hypersecretion [None]
  - Mood swings [None]
  - Myalgia [None]
  - Peripheral coldness [None]
  - Impaired work ability [None]
  - Sleep attacks [None]
  - Amnesia [None]
  - Disorientation [None]
  - Feeling abnormal [None]
  - Impaired driving ability [None]
  - Activities of daily living impaired [None]
  - Suicide attempt [None]
  - Drug withdrawal syndrome [None]
  - Sensory disturbance [None]
  - Fear [None]
  - Chills [None]
  - Drug interaction [None]
